FAERS Safety Report 10236265 (Version 1)
Quarter: 2014Q1

REPORT INFORMATION
  Report Type: Spontaneous
  Country: US (occurrence: None)
  Receive Date: 20140306
  Receipt Date: 20140306
  Transmission Date: 20141002
  Serious: Yes (Other)
  Sender: FDA-Public Use
  Company Number: 163-21880-13102995

PATIENT
  Age: 85 Year
  Sex: Male
  Weight: 89 kg

DRUGS (4)
  1. REVLIMID (LENALIDOMIDE) [Suspect]
     Indication: PLASMA CELL MYELOMA
     Route: 048
     Dates: start: 20130924, end: 20131008
  2. DEXAMETHASONE (DEXAMETHASONE) [Concomitant]
  3. ACYCLOVIR (ACICLOVIR) [Concomitant]
  4. BACTRIM DS (BACTRIM) [Concomitant]

REACTIONS (1)
  - Thrombocytopenia [None]
